FAERS Safety Report 14741339 (Version 2)
Quarter: 2018Q2

REPORT INFORMATION
  Report Type: Spontaneous
  Country: US (occurrence: US)
  Receive Date: 20180410
  Receipt Date: 20180422
  Transmission Date: 20180711
  Serious: No
  Sender: FDA-Public Use
  Company Number: US-APOTEX-2018AP006048

PATIENT
  Age: 72 Year
  Sex: Female

DRUGS (7)
  1. CLOPIDOGREL [Concomitant]
     Active Substance: CLOPIDOGREL BISULFATE
     Indication: ANTICOAGULANT THERAPY
     Dosage: 1 DF, QD
     Route: 048
  2. BABY ASPIRIN [Concomitant]
     Active Substance: ASPIRIN
     Indication: CARDIAC DISORDER
     Dosage: 1 DF, QD
     Route: 048
  3. ATORVASTATIN [Concomitant]
     Active Substance: ATORVASTATIN
     Indication: CARDIAC DISORDER
     Dosage: 1 DF, QD
     Route: 048
  4. MOMETASONE FUROATE NASAL SPRAY [Suspect]
     Active Substance: MOMETASONE FUROATE
     Indication: HYPERSENSITIVITY
     Dosage: 2 SPRAYS PER NOSTRIL, BID
     Route: 045
     Dates: start: 201706, end: 20180118
  5. PANTOPRAZOL [Concomitant]
     Active Substance: PANTOPRAZOLE SODIUM
     Indication: ANTACID THERAPY
     Dosage: 1 DF, QD
     Route: 048
  6. NATURE MADE CALCIUM MAGNESIUM ZINC [Concomitant]
     Indication: BONE LOSS
     Dosage: 3 DF, QD
     Route: 048
  7. METOPROLOL. [Concomitant]
     Active Substance: METOPROLOL
     Indication: ARRHYTHMIA
     Dosage: 1 DF, QD
     Route: 048

REACTIONS (2)
  - Diplopia [Not Recovered/Not Resolved]
  - Eye disorder [Not Recovered/Not Resolved]

NARRATIVE: CASE EVENT DATE: 201712
